FAERS Safety Report 22718623 (Version 3)
Quarter: 2024Q2

REPORT INFORMATION
  Report Type: Spontaneous
  Country: US (occurrence: US)
  Receive Date: 20230718
  Receipt Date: 20240416
  Transmission Date: 20240716
  Serious: No
  Sender: FDA-Public Use
  Company Number: US-SA-SAC20230717000966

PATIENT
  Age: 19 Year
  Sex: Male

DRUGS (1)
  1. DUPIXENT [Suspect]
     Active Substance: DUPILUMAB
     Indication: Asthma
     Dosage: 300 MG, QOW
     Route: 058

REACTIONS (8)
  - Injection site urticaria [Recovered/Resolved]
  - Injection site nodule [Recovered/Resolved]
  - Injection site erythema [Recovered/Resolved]
  - Nasal polyps [Unknown]
  - Nasal obstruction [Unknown]
  - Symptom recurrence [Unknown]
  - Influenza like illness [Unknown]
  - Asthma [Unknown]

NARRATIVE: CASE EVENT DATE: 20230201
